FAERS Safety Report 12289774 (Version 1)
Quarter: 2016Q2

REPORT INFORMATION
  Report Type: Spontaneous
  Country: SG (occurrence: SG)
  Receive Date: 20160421
  Receipt Date: 20160421
  Transmission Date: 20160815
  Serious: Yes (Hospitalization)
  Sender: FDA-Public Use
  Company Number: SG-NOVOPROD-487623

PATIENT
  Age: 68 Year
  Sex: Female

DRUGS (3)
  1. MIXTARD HUMAN 70/30 [Suspect]
     Active Substance: INSULIN HUMAN
     Indication: PRODUCT USED FOR UNKNOWN INDICATION
     Dosage: UNK
     Route: 065
  2. MIXTARD HUMAN 70/30 [Suspect]
     Active Substance: INSULIN HUMAN
     Dosage: 29 U, QD (18 U IN MORNING AND 11U AT NIGHT)
     Route: 065
  3. MIXTARD HUMAN 70/30 [Suspect]
     Active Substance: INSULIN HUMAN
     Dosage: 46 U, QD (28 U IN MORNING AND 18U AT NIGHT)
     Route: 065

REACTIONS (3)
  - Chorea [Recovered/Resolved]
  - Ballismus [Recovered/Resolved]
  - Hyperglycaemia [Recovering/Resolving]
